FAERS Safety Report 15595174 (Version 1)
Quarter: 2018Q4

REPORT INFORMATION
  Report Type: Spontaneous
  Country: BR (occurrence: BR)
  Receive Date: 20181107
  Receipt Date: 20181107
  Transmission Date: 20190205
  Serious: Yes (Hospitalization, Other)
  Sender: FDA-Public Use
  Company Number: BR-PFIZER INC-2018439843

PATIENT
  Age: 73 Year
  Sex: Female

DRUGS (3)
  1. LORAX [Suspect]
     Active Substance: LORAZEPAM
     Indication: ANXIETY
     Dosage: 4 MG DAILY, ( 2 TABLETS OF 2MG PER DAY)
  2. LORAX [Suspect]
     Active Substance: LORAZEPAM
     Indication: INSOMNIA
     Dosage: 4MG DAILY (4 TABLETS OF 1MG PER DAY)
  3. ARADOIS [Concomitant]
     Active Substance: LOSARTAN POTASSIUM
     Indication: HYPERTENSION

REACTIONS (12)
  - Dyspnoea [Recovered/Resolved]
  - Fall [Recovered/Resolved]
  - Balance disorder [Recovered/Resolved]
  - Hypotension [Recovered/Resolved]
  - Product use issue [Not Recovered/Not Resolved]
  - Ischaemic stroke [Recovered/Resolved]
  - Fracture [Recovered/Resolved]
  - Memory impairment [Not Recovered/Not Resolved]
  - Osteoarthritis [Not Recovered/Not Resolved]
  - Carotid artery occlusion [Recovered/Resolved]
  - Tremor [Recovered/Resolved]
  - Speech sound disorder [Not Recovered/Not Resolved]
